FAERS Safety Report 9602099 (Version 17)
Quarter: 2016Q3

REPORT INFORMATION
  Report Type: Spontaneous
  Country: US (occurrence: US)
  Receive Date: 20131007
  Receipt Date: 20160729
  Transmission Date: 20161109
  Serious: Yes (Hospitalization, Disabling, Other)
  Sender: FDA-Public Use
  Company Number: US-009507513-1309USA014315

PATIENT
  Sex: Male
  Weight: 79.37 kg

DRUGS (8)
  1. CALCIUM (UNSPECIFIED) (+) VITAMIN D (UNSPECIFIED) [Concomitant]
     Active Substance: CALCIUM CARBONATE\VITAMIN D
     Indication: OSTEOPOROSIS
  2. FOSAMAX [Suspect]
     Active Substance: ALENDRONATE SODIUM
     Indication: OSTEOPOROSIS
     Dosage: 70 MG, QW
     Route: 048
     Dates: start: 20020402, end: 20020903
  3. ALENDRONATE SODIUM. [Suspect]
     Active Substance: ALENDRONATE SODIUM
     Indication: OSTEOPOROSIS
     Dosage: 70 MG, QW
     Route: 048
     Dates: start: 20080615, end: 201211
  4. CALCIUM (UNSPECIFIED) (+) VITAMIN D (UNSPECIFIED) [Concomitant]
     Active Substance: CALCIUM CARBONATE\VITAMIN D
     Indication: OSTEOPENIA
     Dosage: UNK
     Dates: start: 1997
  5. FOSAMAX [Suspect]
     Active Substance: ALENDRONATE SODIUM
     Dosage: UNK
  6. ALENDRONATE SODIUM. [Suspect]
     Active Substance: ALENDRONATE SODIUM
     Indication: OSTEOPENIA
  7. FOSAMAX [Suspect]
     Active Substance: ALENDRONATE SODIUM
     Indication: OSTEOPENIA
     Dosage: 70 MG, QW
     Route: 048
     Dates: start: 20050805
  8. PREDNISONE. [Concomitant]
     Active Substance: PREDNISONE
     Indication: COLITIS ULCERATIVE
     Dosage: UNK
     Dates: start: 1980

REACTIONS (69)
  - Fracture nonunion [Unknown]
  - Low turnover osteopathy [Unknown]
  - Pain [Not Recovered/Not Resolved]
  - Sinus disorder [Unknown]
  - Weight decreased [Unknown]
  - Joint effusion [Unknown]
  - Fall [Unknown]
  - Hyperlipidaemia [Unknown]
  - Influenza like illness [Recovered/Resolved]
  - Adrenal disorder [Unknown]
  - Hypocalcaemia [Recovering/Resolving]
  - Surgery [Unknown]
  - Coronary arterial stent insertion [Unknown]
  - Fall [Unknown]
  - Device damage [Unknown]
  - Fracture delayed union [Unknown]
  - Chest pain [Unknown]
  - Calculus bladder [Unknown]
  - Pain [Unknown]
  - Insomnia [Unknown]
  - Upper respiratory tract infection [Recovered/Resolved]
  - Hypoalbuminaemia [Unknown]
  - Diabetes mellitus [Unknown]
  - Muscle spasms [Unknown]
  - Dyspepsia [Unknown]
  - Device failure [Unknown]
  - Epistaxis [Unknown]
  - Foot fracture [Unknown]
  - Heart rate abnormal [Unknown]
  - Androgen deficiency [Unknown]
  - Depression [Unknown]
  - Shoulder operation [Unknown]
  - Anaemia [Unknown]
  - Hypergonadism [Unknown]
  - Gastrooesophageal reflux disease [Unknown]
  - Thrombocytopenia [Recovering/Resolving]
  - Bone graft [Unknown]
  - Medical device removal [Unknown]
  - Neuropathy peripheral [Unknown]
  - Vascular calcification [Unknown]
  - Joint injury [Unknown]
  - Fall [Unknown]
  - Blood oestrogen decreased [Unknown]
  - Anaemia postoperative [Unknown]
  - Bone graft [Unknown]
  - Hypoxia [Recovered/Resolved]
  - Femur fracture [Recovering/Resolving]
  - Knee operation [Unknown]
  - Restless legs syndrome [Unknown]
  - Hypertension [Unknown]
  - Rheumatoid arthritis [Unknown]
  - Intramedullary rod insertion [Unknown]
  - Squamous cell carcinoma [Unknown]
  - Coronary arterial stent insertion [Unknown]
  - Anaemia postoperative [Unknown]
  - Medical device removal [Unknown]
  - Fracture nonunion [Unknown]
  - Shoulder operation [Unknown]
  - Limb injury [Unknown]
  - Dehydroepiandrosterone decreased [Unknown]
  - Peripheral swelling [Unknown]
  - Drug ineffective [Unknown]
  - Fracture nonunion [Unknown]
  - Surgery [Unknown]
  - Knee operation [Unknown]
  - Asthma [Unknown]
  - Bladder operation [Unknown]
  - Ecchymosis [Unknown]
  - Incision site hypoaesthesia [Unknown]

NARRATIVE: CASE EVENT DATE: 2003
